FAERS Safety Report 6058981-9 (Version None)
Quarter: 2009Q1

REPORT INFORMATION
  Report Type: 
  Country: None (occurrence: None)
  Receive Date: 20090130
  Receipt Date: 20090123
  Transmission Date: 20090719
  Serious: Yes (Hospitalization, Disabling)
  Sender: FDA-Public Use
  Company Number: A0765740A

PATIENT
  Age: 64 Year
  Sex: Male
  Weight: 142.3 kg

DRUGS (2)
  1. AVANDIA [Suspect]
     Route: 048
     Dates: start: 20040101, end: 20040101
  2. AVANDAMET [Suspect]
     Route: 048
     Dates: start: 20040101, end: 20040101

REACTIONS (2)
  - CARDIAC FAILURE CONGESTIVE [None]
  - MYOCARDIAL INFARCTION [None]
